FAERS Safety Report 5522115-7 (Version None)
Quarter: 2007Q4

REPORT INFORMATION
  Report Type: 
  Country: None (occurrence: None)
  Receive Date: 20071120
  Receipt Date: 20071109
  Transmission Date: 20080405
  Serious: Yes (Hospitalization)
  Sender: FDA-Public Use
  Company Number: HK-BAYER-200715891GDS

PATIENT
  Age: 63 Year
  Sex: Female
  Weight: 57 kg

DRUGS (21)
  1. SORAFENIB [Suspect]
     Indication: NON-SMALL CELL LUNG CANCER
     Dosage: TOTAL DAILY DOSE: 800 MG  UNIT DOSE: 200 MG
     Route: 048
     Dates: start: 20070227, end: 20070316
  2. SORAFENIB [Suspect]
     Dosage: TOTAL DAILY DOSE: 800 MG  UNIT DOSE: 200 MG
     Route: 048
     Dates: start: 20070321, end: 20070407
  3. SORAFENIB [Suspect]
     Dosage: TOTAL DAILY DOSE: 800 MG  UNIT DOSE: 200 MG
     Route: 048
     Dates: start: 20070525, end: 20070620
  4. SORAFENIB [Suspect]
     Dosage: TOTAL DAILY DOSE: 800 MG  UNIT DOSE: 200 MG
     Route: 048
     Dates: start: 20070413, end: 20070430
  5. SORAFENIB [Suspect]
     Dosage: AS USED: 400 MG  UNIT DOSE: 200 MG
     Route: 048
     Dates: start: 20070707, end: 20070709
  6. SORAFENIB [Suspect]
     Dosage: TOTAL DAILY DOSE: 800 MG  UNIT DOSE: 200 MG
     Route: 048
     Dates: start: 20070515, end: 20070522
  7. SORAFENIB [Suspect]
     Dosage: AS USED: 400 MG  UNIT DOSE: 200 MG
     Route: 048
     Dates: start: 20070710, end: 20070730
  8. SORAFENIB [Suspect]
     Dosage: AS USED: 400 MG  UNIT DOSE: 200 MG
     Route: 048
     Dates: start: 20070621, end: 20070621
  9. SORAFENIB [Suspect]
     Dosage: AS USED: 400 MG  UNIT DOSE: 200 MG
     Route: 048
     Dates: start: 20070731, end: 20070820
  10. SORAFENIB [Suspect]
     Dosage: AS USED: 400 MG  UNIT DOSE: 200 MG
     Route: 048
     Dates: start: 20070911, end: 20071002
  11. SORAFENIB [Suspect]
     Dosage: AS USED: 400 MG  UNIT DOSE: 200 MG
     Route: 048
     Dates: start: 20070821, end: 20070910
  12. CARBOPLATIN [Suspect]
     Indication: NON-SMALL CELL LUNG CANCER
     Route: 065
  13. PACLITAXEL [Suspect]
     Indication: NON-SMALL CELL LUNG CANCER
     Route: 065
  14. TRIAMCINOLONE ACETONIDE [Concomitant]
     Indication: CHEILITIS
     Route: 004
     Dates: start: 20070614, end: 20070704
  15. ORABASE [Concomitant]
     Indication: DRUG USE FOR UNKNOWN INDICATION
     Route: 004
  16. BENZYDAMINE HYDROCHLORIDE [Concomitant]
     Indication: STOMATITIS
     Route: 048
     Dates: start: 20070621, end: 20070704
  17. DOLOGESIC [Concomitant]
     Indication: ANALGESIC INTERVENTION SUPPORTIVE THERAPY
     Route: 048
     Dates: start: 20070621, end: 20070704
  18. AMPICILLIN [Concomitant]
     Indication: BACTERIAL INFECTION
     Route: 048
     Dates: start: 20070625, end: 20070701
  19. CEFUROXIME AXETIL [Concomitant]
     Indication: SYSTEMIC ANTIBACTERIAL THERAPY
     Route: 048
     Dates: end: 20070722
  20. PARACETAMOL [Concomitant]
     Indication: ANALGESIC INTERVENTION SUPPORTIVE THERAPY
     Route: 048
     Dates: start: 20070731, end: 20070802
  21. DEXAMETHASONE 0.1% + CHLORAMPHENICOL [Concomitant]
     Indication: EYE DISORDER
     Route: 047
     Dates: start: 20070801, end: 20070821

REACTIONS (1)
  - MUSCLE SPASMS [None]
